FAERS Safety Report 6423254-9 (Version None)
Quarter: 2009Q4

REPORT INFORMATION
  Report Type: 
  Country: None (occurrence: None)
  Receive Date: 20091102
  Receipt Date: 20091026
  Transmission Date: 20100525
  Serious: Yes (Hospitalization)
  Sender: FDA-Public Use
  Company Number: GXKR2009CA11727

PATIENT
  Age: 2 Year
  Sex: Male
  Weight: 12.7 kg

DRUGS (2)
  1. FLECAINIDE ACETATE (NGX) [Suspect]
     Dosage: 20 MG, TID (4.8 MG/KG/DAY)
     Route: 065
  2. NADOLOL [Concomitant]
     Dosage: 25 MG, QD (2 MG/KG/DAY)
     Route: 065

REACTIONS (18)
  - ACCIDENTAL OVERDOSE [None]
  - BLOOD ALKALINE PHOSPHATASE INCREASED [None]
  - BLOOD AMYLASE INCREASED [None]
  - BLOOD GLUCOSE DECREASED [None]
  - BLOOD PH DECREASED [None]
  - BLOOD PRESSURE IMMEASURABLE [None]
  - BRADYCARDIA [None]
  - BUNDLE BRANCH BLOCK LEFT [None]
  - CARBON DIOXIDE INCREASED [None]
  - CONVULSION [None]
  - DRUG TOXICITY [None]
  - MEDICATION ERROR [None]
  - NODAL ARRHYTHMIA [None]
  - PULSE ABSENT [None]
  - RESPIRATORY ARREST [None]
  - SOMNOLENCE [None]
  - TACHYCARDIA [None]
  - UNRESPONSIVE TO STIMULI [None]
